FAERS Safety Report 6341391-4 (Version None)
Quarter: 2009Q3

REPORT INFORMATION
  Report Type: 
  Country: None (occurrence: None)
  Receive Date: 20090902
  Receipt Date: 20090902
  Transmission Date: 20100115
  Serious: Yes (Other)
  Sender: FDA-Public Use
  Company Number: None

PATIENT
  Age: 55 Year
  Sex: Female
  Weight: 88.4514 kg

DRUGS (3)
  1. NIELMED RINSE NIELMED [Suspect]
     Indication: ASTHMA
     Dosage: 1 PACKET IN 240ML OF WATER DAILY / PRN NASAL
     Route: 045
     Dates: start: 20080913, end: 20090611
  2. NIELMED RINSE NIELMED [Suspect]
     Indication: ASTHMA PROPHYLAXIS
     Dosage: 1 PACKET IN 240ML OF WATER DAILY / PRN NASAL
     Route: 045
     Dates: start: 20080913, end: 20090611
  3. NIELMED RINSE NIELMED [Suspect]
     Indication: SINUSITIS
     Dosage: 1 PACKET IN 240ML OF WATER DAILY / PRN NASAL
     Route: 045
     Dates: start: 20080913, end: 20090611

REACTIONS (11)
  - ASTHMA [None]
  - BLOOD GLUCOSE INCREASED [None]
  - CATARACT [None]
  - CONDITION AGGRAVATED [None]
  - MALAISE [None]
  - MUSCLE DISORDER [None]
  - NASAL IRRIGATION [None]
  - PANCREATIC DISORDER [None]
  - RESPIRATORY TRACT IRRITATION [None]
  - SINUS CONGESTION [None]
  - THROAT IRRITATION [None]
